FAERS Safety Report 23449632 (Version 6)
Quarter: 2024Q4

REPORT INFORMATION
  Report Type: Spontaneous
  Country: CO (occurrence: CO)
  Receive Date: 20240129
  Receipt Date: 20241007
  Transmission Date: 20250115
  Serious: Yes (Hospitalization, Other)
  Sender: GLAXOSMITHKLINE
  Company Number: CO-GLAXOSMITHKLINE-CO2024AMR010497

PATIENT

DRUGS (1)
  1. NUCALA [Suspect]
     Active Substance: MEPOLIZUMAB
     Indication: Asthma
     Dosage: 100 MG, MO, (EVERY 30 DAYS)
     Dates: start: 20240115, end: 20240405

REACTIONS (15)
  - Asthma [Not Recovered/Not Resolved]
  - Hemiplegia [Not Recovered/Not Resolved]
  - Chest pain [Not Recovered/Not Resolved]
  - Back pain [Not Recovered/Not Resolved]
  - Insomnia [Not Recovered/Not Resolved]
  - Illness [Unknown]
  - Dizziness [Unknown]
  - Nausea [Unknown]
  - Symptom recurrence [Unknown]
  - Asthenia [Unknown]
  - Dyspnoea [Unknown]
  - Snoring [Unknown]
  - Pyrexia [Not Recovered/Not Resolved]
  - Nasal congestion [Not Recovered/Not Resolved]
  - Hepatic steatosis [Not Recovered/Not Resolved]

NARRATIVE: CASE EVENT DATE: 20240101
